FAERS Safety Report 24160231 (Version 2)
Quarter: 2024Q3

REPORT INFORMATION
  Report Type: Spontaneous
  Country: GB (occurrence: GB)
  Receive Date: 20240801
  Receipt Date: 20240814
  Transmission Date: 20241016
  Serious: Yes (Other)
  Sender: CELLTRION
  Company Number: GB-CELLTRION INC.-2024GB018168

PATIENT

DRUGS (2)
  1. INFLIXIMAB [Suspect]
     Active Substance: INFLIXIMAB
     Indication: Crohn^s disease
     Dosage: 120 MG PRE FILLED PEN PK2
     Route: 058
     Dates: start: 202407
  2. INFLIXIMAB [Suspect]
     Active Substance: INFLIXIMAB
     Dosage: 120 MG PRE FILLED PEN
     Route: 058
     Dates: start: 202407

REACTIONS (5)
  - Syncope [Recovered/Resolved]
  - Hypertension [Unknown]
  - Hypotension [Recovered/Resolved]
  - Injection site pain [Recovered/Resolved]
  - Tachycardia [Recovered/Resolved]
